FAERS Safety Report 20597551 (Version 1)
Quarter: 2022Q1

REPORT INFORMATION
  Report Type: Spontaneous
  Country: CN (occurrence: None)
  Receive Date: 20220315
  Receipt Date: 20220315
  Transmission Date: 20220423
  Serious: Yes (Hospitalization)
  Sender: FDA-Public Use
  Company Number: 2022A099427

PATIENT
  Age: 53 Year
  Sex: Female
  Weight: 53 kg

DRUGS (3)
  1. IMFINZI [Suspect]
     Active Substance: DURVALUMAB
     Indication: Squamous cell carcinoma of lung
     Dosage: 1000 MG/CYCLE, ONCE EVERY 21 DAYS
     Route: 042
     Dates: start: 20210628, end: 20210727
  2. IMFINZI [Suspect]
     Active Substance: DURVALUMAB
     Indication: Squamous cell carcinoma of lung
     Dosage: 1000 MG/CYCLE, ONCE EVERY 21 DAYS
     Route: 042
  3. RADIATION THERAPY [Concomitant]
     Active Substance: RADIATION THERAPY

REACTIONS (1)
  - Platelet count decreased [Recovered/Resolved]
